FAERS Safety Report 7395564-2 (Version None)
Quarter: 2011Q2

REPORT INFORMATION
  Report Type: 
  Country: None (occurrence: None)
  Receive Date: 20110405
  Receipt Date: 20110330
  Transmission Date: 20111010
  Serious: Yes (Life-Threatening, Hospitalization, Other)
  Sender: FDA-Public Use
  Company Number: PHHO2011CH04374

PATIENT
  Sex: Male

DRUGS (2)
  1. EVEROLIMUS [Suspect]
     Indication: HEPATIC NEOPLASM MALIGNANT
     Dosage: 5 MG, QD
     Route: 048
     Dates: start: 20101202, end: 20110307
  2. SORAFENIB [Suspect]
     Indication: HEPATIC NEOPLASM MALIGNANT
     Dosage: 800 MG, QD
     Route: 048
     Dates: start: 20101202, end: 20110307

REACTIONS (2)
  - EPISTAXIS [None]
  - PULMONARY EMBOLISM [None]
